FAERS Safety Report 10757917 (Version 1)
Quarter: 2015Q1

REPORT INFORMATION
  Report Type: Spontaneous
  Country: JP (occurrence: JP)
  Receive Date: 20150203
  Receipt Date: 20150203
  Transmission Date: 20150721
  Serious: Yes (Other)
  Sender: FDA-Public Use
  Company Number: JP-009507513-1501JPN012174

PATIENT
  Age: 72 Year
  Sex: Female

DRUGS (1)
  1. FOSAMAX [Suspect]
     Active Substance: ALENDRONATE SODIUM
     Dosage: 35 MG, QW
     Route: 048

REACTIONS (5)
  - Peripheral swelling [Unknown]
  - Joint effusion [Unknown]
  - Sensory loss [Unknown]
  - Peripheral paralysis [Unknown]
  - Arthralgia [Unknown]
